FAERS Safety Report 5027160-6 (Version None)
Quarter: 2006Q2

REPORT INFORMATION
  Report Type: 
  Country: None (occurrence: None)
  Receive Date: 20060612
  Receipt Date: 20060602
  Transmission Date: 20061013
  Serious: Yes (Disabling)
  Sender: FDA-Public Use
  Company Number: 06H-163-0308377-00

PATIENT
  Sex: Female

DRUGS (2)
  1. LIDOCAINE [Suspect]
     Indication: ANAESTHESIA
     Dates: start: 20040203, end: 20040203
  2. AMVISC (HYALURONATE SODIUM) [Concomitant]

REACTIONS (6)
  - ANAESTHETIC COMPLICATION [None]
  - BLINDNESS UNILATERAL [None]
  - BLISTER [None]
  - CATARACT OPERATION COMPLICATION [None]
  - INJURY CORNEAL [None]
  - SWELLING [None]
